FAERS Safety Report 5052812-1 (Version None)
Quarter: 2006Q3

REPORT INFORMATION
  Report Type: 
  Country: None (occurrence: None)
  Receive Date: 20060717
  Receipt Date: 20060707
  Transmission Date: 20061208
  Serious: Yes (Other)
  Sender: FDA-Public Use
  Company Number: 2006AC01278

PATIENT
  Age: 81 Year
  Sex: Female

DRUGS (2)
  1. OMEPRAZOLE [Suspect]
  2. ATORVASTATIN CALCIUM [Suspect]

REACTIONS (2)
  - MUSCULAR WEAKNESS [None]
  - MYOSITIS [None]
